FAERS Safety Report 19984493 (Version 1)
Quarter: 2021Q4

REPORT INFORMATION
  Report Type: Spontaneous
  Country: US (occurrence: US)
  Receive Date: 20211022
  Receipt Date: 20211022
  Transmission Date: 20220303
  Serious: Yes (unspecified)
  Sender: FDA-Public Use
  Company Number: None

PATIENT
  Sex: Male
  Weight: 76.95 kg

DRUGS (7)
  1. LANSOPRAZOLE [Suspect]
     Active Substance: LANSOPRAZOLE
     Indication: Gastrooesophageal reflux disease
     Dosage: ?          OTHER ROUTE:PEG TUBE
     Dates: start: 20210628, end: 20210928
  2. METHYLPHENIDATE [Concomitant]
     Active Substance: METHYLPHENIDATE
     Dates: start: 20210910, end: 20211022
  3. baclofen 2000mcg/ml [Concomitant]
     Dates: start: 20140319, end: 20211022
  4. ESZOPICLONE [Concomitant]
     Active Substance: ESZOPICLONE
     Dates: start: 20130918, end: 20211022
  5. childrens ibuprofen liquid [Concomitant]
     Dates: start: 20210621, end: 20211022
  6. clearlax 17gm [Concomitant]
     Dates: start: 20190116, end: 20211022
  7. ketoconazole cream PRN [Concomitant]
     Dates: start: 20130502, end: 20211022

REACTIONS (1)
  - Drug ineffective [None]
